FAERS Safety Report 12178956 (Version 1)
Quarter: 2016Q1

REPORT INFORMATION
  Report Type: Spontaneous
  Country: US (occurrence: None)
  Receive Date: 20160314
  Receipt Date: 20160314
  Transmission Date: 20160526
  Serious: No
  Sender: FDA-Public Use
  Company Number: None

PATIENT
  Age: 45 Year
  Sex: Male

DRUGS (1)
  1. ULORIC [Suspect]
     Active Substance: FEBUXOSTAT
     Indication: GOUT
     Dosage: TAKEN BY MOUTH 1PILL
     Route: 048
     Dates: start: 20160208, end: 20160309

REACTIONS (1)
  - Gout [None]

NARRATIVE: CASE EVENT DATE: 20160313
